FAERS Safety Report 14842881 (Version 1)
Quarter: 2018Q2

REPORT INFORMATION
  Report Type: Spontaneous
  Country: JP (occurrence: JP)
  Receive Date: 20180503
  Receipt Date: 20180503
  Transmission Date: 20180711
  Serious: Yes (Other)
  Sender: FDA-Public Use
  Company Number: JP-ROCHE-2117668

PATIENT
  Age: 87 Year
  Sex: Female

DRUGS (2)
  1. TRAMAL [Concomitant]
     Active Substance: TRAMADOL
  2. BONVIVA [Suspect]
     Active Substance: IBANDRONATE SODIUM
     Indication: OSTEOPOROSIS
     Route: 042
     Dates: start: 20160705, end: 20160805

REACTIONS (3)
  - Acute phase reaction [Recovered/Resolved]
  - Altered state of consciousness [Recovered/Resolved]
  - Overdose [Unknown]

NARRATIVE: CASE EVENT DATE: 20160709
